FAERS Safety Report 5254379-1 (Version None)
Quarter: 2007Q1

REPORT INFORMATION
  Report Type: 
  Country: None (occurrence: None)
  Receive Date: 20070302
  Receipt Date: 20070221
  Transmission Date: 20070707
  Serious: Yes (Hospitalization, Other)
  Sender: FDA-Public Use
  Company Number: GB-ABBOTT-07P-167-0360190-00

PATIENT
  Age: 46 Year
  Sex: Female

DRUGS (1)
  1. REDUCTIL [Suspect]
     Indication: WEIGHT CONTROL
     Route: 048

REACTIONS (2)
  - THROMBOEMBOLIC STROKE [None]
  - THROMBOSIS [None]
